FAERS Safety Report 21270670 (Version 2)
Quarter: 2022Q3

REPORT INFORMATION
  Report Type: Spontaneous
  Country: CA (occurrence: CA)
  Receive Date: 20220830
  Receipt Date: 20220907
  Transmission Date: 20221027
  Serious: Yes (Other)
  Sender: FDA-Public Use
  Company Number: CA-JNJFOC-20220854041

PATIENT
  Sex: Female

DRUGS (4)
  1. SPORANOX [Suspect]
     Active Substance: ITRACONAZOLE
     Indication: Fungal infection
     Route: 065
  2. RINVOQ [Suspect]
     Active Substance: UPADACITINIB
     Indication: Dermatitis atopic
     Route: 048
  3. RINVOQ [Suspect]
     Active Substance: UPADACITINIB
     Route: 048
  4. RINVOQ [Suspect]
     Active Substance: UPADACITINIB
     Route: 048

REACTIONS (9)
  - Diverticulitis [Recovered/Resolved]
  - Drug ineffective [Unknown]
  - Fungal infection [Recovered/Resolved]
  - Grip strength decreased [Recovered/Resolved]
  - Muscular weakness [Recovered/Resolved]
  - Rash [Recovered/Resolved]
  - Staphylococcal infection [Recovered/Resolved]
  - Subcutaneous abscess [Recovered/Resolved]
  - Tremor [Recovered/Resolved]
